FAERS Safety Report 20098433 (Version 1)
Quarter: 2021Q4

REPORT INFORMATION
  Report Type: Report from Study
  Country: CA (occurrence: CA)
  Receive Date: 20211122
  Receipt Date: 20211122
  Transmission Date: 20220303
  Serious: Yes (Other)
  Sender: FDA-Public Use
  Company Number: CA-TAKEDA-2021TUS067443

PATIENT
  Age: 29 Year
  Sex: Female

DRUGS (4)
  1. VEDOLIZUMAB [Suspect]
     Active Substance: VEDOLIZUMAB
     Indication: Colitis ulcerative
     Dosage: 300 MILLIGRAM
     Route: 042
     Dates: start: 20180403
  2. VEDOLIZUMAB [Suspect]
     Active Substance: VEDOLIZUMAB
     Dosage: 300 MILLIGRAM
     Route: 042
     Dates: start: 20190821
  3. ASACOL [Concomitant]
     Active Substance: MESALAMINE
     Dosage: 3200 MILLIGRAM, QD
  4. PENTASA [Concomitant]
     Active Substance: MESALAMINE
     Dosage: 1 GRAM, QD

REACTIONS (2)
  - Face injury [Unknown]
  - Off label use [Unknown]

NARRATIVE: CASE EVENT DATE: 20190821
